FAERS Safety Report 16653098 (Version 8)
Quarter: 2019Q4

REPORT INFORMATION
  Report Type: Report from Study
  Country: BR (occurrence: BR)
  Receive Date: 20190731
  Receipt Date: 20191223
  Transmission Date: 20200122
  Serious: Yes (Hospitalization, Disabling, Other)
  Sender: FDA-Public Use
  Company Number: BR-TAKEDA-2019TUS038342

PATIENT
  Age: 82 Year
  Sex: Female

DRUGS (11)
  1. ACYCLOVIR                          /00587301/ [Concomitant]
     Active Substance: ACYCLOVIR
     Indication: PRODUCT USED FOR UNKNOWN INDICATION
     Dosage: 200 MILLIGRAM, BID
     Route: 048
  2. BACTRIM [Concomitant]
     Active Substance: SULFAMETHOXAZOLE\TRIMETHOPRIM
     Indication: PRODUCT USED FOR UNKNOWN INDICATION
     Dosage: UNK
     Route: 048
  3. IXAZOMIB [Suspect]
     Active Substance: IXAZOMIB
     Indication: PLASMA CELL MYELOMA
     Dosage: 4 MILLIGRAM
     Route: 048
     Dates: start: 20190527
  4. LEVOID [Concomitant]
     Active Substance: LEVOTHYROXINE
     Indication: HYPOTHYROIDISM
     Dosage: 28 MICROGRAM, QD
     Route: 048
  5. DEXAMETHASONE. [Suspect]
     Active Substance: DEXAMETHASONE
     Indication: PLASMA CELL MYELOMA
     Dosage: UNK
     Route: 048
  6. LACTULONA [Concomitant]
     Indication: CONSTIPATION
     Dosage: UNK
     Route: 065
  7. LEVOFLOXACIN. [Concomitant]
     Active Substance: LEVOFLOXACIN
     Indication: INFECTION PROPHYLAXIS
     Dosage: UNK
     Route: 048
  8. IXAZOMIB [Suspect]
     Active Substance: IXAZOMIB
     Dosage: 4 MILLIGRAM
     Route: 048
  9. REVLIMID [Suspect]
     Active Substance: LENALIDOMIDE
     Indication: PLASMA CELL MYELOMA
     Dosage: UNK
     Route: 048
  10. DEXAMETHASONE. [Suspect]
     Active Substance: DEXAMETHASONE
     Dosage: 4 MILLIGRAM
     Route: 048
  11. REVLIMID [Suspect]
     Active Substance: LENALIDOMIDE
     Dosage: 5 MILLIGRAM
     Route: 048

REACTIONS (30)
  - Bronchitis [Unknown]
  - Neutropenia [Unknown]
  - Catarrh [Unknown]
  - Tremor [Recovered/Resolved]
  - Vomiting [Unknown]
  - Paralysis [Not Recovered/Not Resolved]
  - Hypotension [Recovered/Resolved]
  - Presbyopia [Unknown]
  - Anaemia [Not Recovered/Not Resolved]
  - Asthenia [Unknown]
  - Somnolence [Recovering/Resolving]
  - Decreased appetite [Recovered/Resolved]
  - Gastrointestinal disorder [Unknown]
  - Influenza [Recovered/Resolved]
  - Nausea [Recovered/Resolved]
  - Cough [Unknown]
  - Dehydration [Recovered/Resolved]
  - Gastrointestinal infection [Recovered/Resolved]
  - Apathy [Unknown]
  - Blood pressure increased [Recovered/Resolved]
  - Diarrhoea [Recovered/Resolved]
  - Skin discolouration [Unknown]
  - Urinary tract infection [Recovered/Resolved]
  - Platelet count decreased [Unknown]
  - Off label use [Unknown]
  - Pneumonia [Not Recovered/Not Resolved]
  - Syncope [Recovered/Resolved]
  - Palatal disorder [Recovering/Resolving]
  - Dysphagia [Not Recovered/Not Resolved]
  - Blood count abnormal [Unknown]

NARRATIVE: CASE EVENT DATE: 2019
